FAERS Safety Report 8809356 (Version 4)
Quarter: 2012Q4

REPORT INFORMATION
  Report Type: 
  Country: JP (occurrence: JP)
  Receive Date: 20120926
  Receipt Date: 20121105
  Transmission Date: 20130627
  Serious: Yes (Death)
  Sender: FDA-Public Use
  Company Number: JP-JNJFOC-20120911169

PATIENT
  Age: 81 Year
  Sex: Female
  Weight: 50 kg

DRUGS (4)
  1. XARELTO [Suspect]
     Indication: ATRIAL FIBRILLATION
     Route: 048
     Dates: start: 20120904, end: 20120906
  2. XARELTO [Suspect]
     Indication: CEREBROVASCULAR ACCIDENT PROPHYLAXIS
     Route: 048
     Dates: start: 20120904, end: 20120906
  3. GASTER [Concomitant]
     Indication: GASTRITIS
     Route: 048
     Dates: end: 20120906
  4. LASIX [Concomitant]
     Indication: CARDIAC FAILURE
     Route: 048
     Dates: end: 20120906

REACTIONS (1)
  - Death [Fatal]
